FAERS Safety Report 6635170-8 (Version None)
Quarter: 2010Q1

REPORT INFORMATION
  Report Type: 
  Country: None (occurrence: None)
  Receive Date: 20100315
  Receipt Date: 20100311
  Transmission Date: 20100710
  Serious: Yes (Death)
  Sender: FDA-Public Use
  Company Number: PHHY2010CA15194

PATIENT
  Sex: Male

DRUGS (2)
  1. ACLASTA [Suspect]
     Indication: OSTEOPOROSIS
     Dosage: 5 MG/100ML
     Route: 042
     Dates: start: 20100224
  2. ACLASTA [Suspect]
     Dosage: 5 MG/100ML
     Route: 042
     Dates: start: 20090224

REACTIONS (1)
  - DEATH [None]
